FAERS Safety Report 18078985 (Version 2)
Quarter: 2020Q3

REPORT INFORMATION
  Report Type: Spontaneous
  Country: US (occurrence: US)
  Receive Date: 20200728
  Receipt Date: 20200803
  Transmission Date: 20201103
  Serious: No
  Sender: FDA-Public Use
  Company Number: US-BRISTOL-MYERS SQUIBB COMPANY-BMS-2020-058066

PATIENT

DRUGS (4)
  1. ULTRAM [Interacting]
     Active Substance: TRAMADOL HYDROCHLORIDE
     Indication: ASPHYXIA
  2. METOPROLOL SUCCINATE. [Interacting]
     Active Substance: METOPROLOL SUCCINATE
     Indication: PRODUCT USED FOR UNKNOWN INDICATION
     Dosage: ONE PILL A DAY
     Route: 065
  3. ULTRAM [Interacting]
     Active Substance: TRAMADOL HYDROCHLORIDE
     Indication: PAIN
     Dosage: ONE TABLET DAILY
     Route: 048
  4. ELIQUIS [Suspect]
     Active Substance: APIXABAN
     Indication: PRODUCT USED FOR UNKNOWN INDICATION
     Dosage: 5 MILLIGRAM, BID
     Route: 065

REACTIONS (2)
  - Drug interaction [Unknown]
  - Palpitations [Unknown]
